FAERS Safety Report 7572805-X (Version None)
Quarter: 2011Q2

REPORT INFORMATION
  Report Type: 
  Country: None (occurrence: None)
  Receive Date: 20110627
  Receipt Date: 20110622
  Transmission Date: 20111010
  Serious: No
  Sender: FDA-Public Use
  Company Number: US-PFIZER INC-2011139122

PATIENT
  Sex: Male
  Weight: 70.748 kg

DRUGS (1)
  1. PROTONIX [Suspect]
     Indication: HAEMORRHAGE
     Dosage: UNK
     Dates: start: 20110414, end: 20110101

REACTIONS (1)
  - DRUG SCREEN FALSE POSITIVE [None]
